FAERS Safety Report 5484303-8 (Version None)
Quarter: 2007Q4

REPORT INFORMATION
  Report Type: 
  Country: None (occurrence: None)
  Receive Date: 20071012
  Receipt Date: 20071012
  Transmission Date: 20080405
  Serious: Yes (Death)
  Sender: FDA-Public Use
  Company Number: JP-BOEHRINGER INGELHEIM PHARMACEUTICALS, INC.-2007-BP-21952NB

PATIENT
  Sex: Male
  Weight: 45.7 kg

DRUGS (5)
  1. SPIRIVA [Suspect]
     Indication: BRONCHITIS CHRONIC
     Route: 055
     Dates: start: 20060524, end: 20060707
  2. PAXIL [Concomitant]
     Indication: PANIC DISORDER
     Route: 048
     Dates: start: 20060524, end: 20060707
  3. KURIANALL [Concomitant]
     Indication: BRONCHITIS
     Route: 048
     Dates: start: 20060524, end: 20060707
  4. LANSOPRAZOLE [Concomitant]
     Indication: GASTRIC ULCER
     Route: 048
     Dates: start: 20060524, end: 20060707
  5. RIKKUNSHI-TO [Concomitant]
     Indication: GASTRIC ULCER
     Route: 048
     Dates: start: 20060524, end: 20060707

REACTIONS (1)
  - OESOPHAGEAL CARCINOMA [None]
